FAERS Safety Report 11552704 (Version 1)
Quarter: 2015Q3

REPORT INFORMATION
  Report Type: Report from Study
  Country: CA (occurrence: CA)
  Receive Date: 20150925
  Receipt Date: 20150925
  Transmission Date: 20151125
  Serious: Yes (Other)
  Sender: FDA-Public Use
  Company Number: CA-JNJFOC-20150914411

PATIENT
  Age: 46 Year
  Sex: Female

DRUGS (1)
  1. STELARA [Suspect]
     Active Substance: USTEKINUMAB
     Indication: PSORIASIS
     Route: 058
     Dates: start: 20121218

REACTIONS (4)
  - Cholelithiasis [Unknown]
  - Inappropriate schedule of drug administration [Unknown]
  - Gastrooesophageal reflux disease [Unknown]
  - Pancreatitis [Unknown]

NARRATIVE: CASE EVENT DATE: 20121218
